FAERS Safety Report 8244690-4 (Version None)
Quarter: 2012Q1

REPORT INFORMATION
  Report Type: 
  Country: None (occurrence: None)
  Receive Date: 20120329
  Receipt Date: 20120127
  Transmission Date: 20120608
  Serious: No
  Sender: FDA-Public Use
  Company Number: US-MYLANLABS-2012S1002238

PATIENT
  Sex: Female

DRUGS (4)
  1. PREDNISONE TAB [Concomitant]
  2. SPIRONOLACTONE [Concomitant]
  3. FENTANYL-100 [Suspect]
     Indication: BACK PAIN
     Dosage: CHANGED Q72H
     Route: 062
     Dates: start: 20070101, end: 20111201
  4. CRESTOR [Concomitant]

REACTIONS (9)
  - HYPERSENSITIVITY [None]
  - SKIN MASS [None]
  - FLUID RETENTION [None]
  - SWELLING FACE [None]
  - PRURITUS [None]
  - JOINT SWELLING [None]
  - OEDEMA PERIPHERAL [None]
  - EYE PRURITUS [None]
  - LACRIMATION INCREASED [None]
